FAERS Safety Report 25920590 (Version 1)
Quarter: 2025Q4

REPORT INFORMATION
  Report Type: Spontaneous
  Country: EU (occurrence: EU)
  Receive Date: 20251014
  Receipt Date: 20251014
  Transmission Date: 20260118
  Serious: Yes (Life-Threatening)
  Sender: MYLAN
  Company Number: None

PATIENT
  Age: 34 Year
  Sex: Female
  Weight: 80 kg

DRUGS (36)
  1. TRANEXAMIC ACID [Suspect]
     Active Substance: TRANEXAMIC ACID
     Indication: Postpartum haemorrhage
     Dosage: 1 GRAM
     Dates: start: 20250909, end: 20250909
  2. TRANEXAMIC ACID [Suspect]
     Active Substance: TRANEXAMIC ACID
     Dosage: 1 GRAM
     Route: 042
     Dates: start: 20250909, end: 20250909
  3. TRANEXAMIC ACID [Suspect]
     Active Substance: TRANEXAMIC ACID
     Dosage: 1 GRAM
     Route: 042
     Dates: start: 20250909, end: 20250909
  4. TRANEXAMIC ACID [Suspect]
     Active Substance: TRANEXAMIC ACID
     Dosage: 1 GRAM
     Dates: start: 20250909, end: 20250909
  5. CEFAZOLIN SODIUM [Suspect]
     Active Substance: CEFAZOLIN SODIUM
     Indication: Antibiotic prophylaxis
     Dosage: 2 GRAM
     Dates: start: 20250909, end: 20250909
  6. CEFAZOLIN SODIUM [Suspect]
     Active Substance: CEFAZOLIN SODIUM
     Dosage: 2 GRAM
     Route: 042
     Dates: start: 20250909, end: 20250909
  7. CEFAZOLIN SODIUM [Suspect]
     Active Substance: CEFAZOLIN SODIUM
     Dosage: 2 GRAM
     Route: 042
     Dates: start: 20250909, end: 20250909
  8. CEFAZOLIN SODIUM [Suspect]
     Active Substance: CEFAZOLIN SODIUM
     Dosage: 2 GRAM
     Dates: start: 20250909, end: 20250909
  9. SUFENTANIL [Suspect]
     Active Substance: SUFENTANIL
     Indication: Anaesthesia procedure
     Dosage: 5 MICROGRAM
     Dates: start: 20250909, end: 20250909
  10. SUFENTANIL [Suspect]
     Active Substance: SUFENTANIL
     Dosage: 5 MICROGRAM
     Route: 008
     Dates: start: 20250909, end: 20250909
  11. SUFENTANIL [Suspect]
     Active Substance: SUFENTANIL
     Dosage: 5 MICROGRAM
     Route: 008
     Dates: start: 20250909, end: 20250909
  12. SUFENTANIL [Suspect]
     Active Substance: SUFENTANIL
     Dosage: 5 MICROGRAM
     Dates: start: 20250909, end: 20250909
  13. KETOPROFEN [Suspect]
     Active Substance: KETOPROFEN
     Indication: Pain
     Dosage: UNK
     Dates: start: 20250909, end: 20250909
  14. KETOPROFEN [Suspect]
     Active Substance: KETOPROFEN
     Dosage: UNK
     Route: 042
     Dates: start: 20250909, end: 20250909
  15. KETOPROFEN [Suspect]
     Active Substance: KETOPROFEN
     Dosage: UNK
     Route: 042
     Dates: start: 20250909, end: 20250909
  16. KETOPROFEN [Suspect]
     Active Substance: KETOPROFEN
     Dosage: UNK
     Dates: start: 20250909, end: 20250909
  17. SULPROSTONE [Suspect]
     Active Substance: SULPROSTONE
     Indication: Postpartum haemorrhage
     Dosage: 500 MICROGRAM, LYOPHILISATE FOR PARENTERAL USE
     Dates: start: 20250909, end: 20250909
  18. SULPROSTONE [Suspect]
     Active Substance: SULPROSTONE
     Dosage: 500 MICROGRAM, LYOPHILISATE FOR PARENTERAL USE
     Route: 042
     Dates: start: 20250909, end: 20250909
  19. SULPROSTONE [Suspect]
     Active Substance: SULPROSTONE
     Dosage: 500 MICROGRAM, LYOPHILISATE FOR PARENTERAL USE
     Route: 042
     Dates: start: 20250909, end: 20250909
  20. SULPROSTONE [Suspect]
     Active Substance: SULPROSTONE
     Dosage: 500 MICROGRAM, LYOPHILISATE FOR PARENTERAL USE
     Dates: start: 20250909, end: 20250909
  21. PROPOFOL [Suspect]
     Active Substance: PROPOFOL
     Indication: Light anaesthesia
     Dosage: 30 MILLIGRAM
     Dates: start: 20250909, end: 20250909
  22. PROPOFOL [Suspect]
     Active Substance: PROPOFOL
     Dosage: 30 MILLIGRAM
     Route: 042
     Dates: start: 20250909, end: 20250909
  23. PROPOFOL [Suspect]
     Active Substance: PROPOFOL
     Dosage: 30 MILLIGRAM
     Route: 042
     Dates: start: 20250909, end: 20250909
  24. PROPOFOL [Suspect]
     Active Substance: PROPOFOL
     Dosage: 30 MILLIGRAM
     Dates: start: 20250909, end: 20250909
  25. EPINEPHRINE\LIDOCAINE [Suspect]
     Active Substance: EPINEPHRINE\LIDOCAINE
     Indication: Anaesthesia procedure
     Dosage: 300 MILLIGRAM
     Dates: start: 20250909, end: 20250909
  26. EPINEPHRINE\LIDOCAINE [Suspect]
     Active Substance: EPINEPHRINE\LIDOCAINE
     Dosage: 300 MILLIGRAM
     Route: 008
     Dates: start: 20250909, end: 20250909
  27. EPINEPHRINE\LIDOCAINE [Suspect]
     Active Substance: EPINEPHRINE\LIDOCAINE
     Dosage: 300 MILLIGRAM
     Route: 008
     Dates: start: 20250909, end: 20250909
  28. EPINEPHRINE\LIDOCAINE [Suspect]
     Active Substance: EPINEPHRINE\LIDOCAINE
     Dosage: 300 MILLIGRAM
     Dates: start: 20250909, end: 20250909
  29. CARBETOCIN [Suspect]
     Active Substance: CARBETOCIN
     Indication: Uterine atony
     Dosage: 100 MICROGRAM
     Dates: start: 20250909, end: 20250909
  30. CARBETOCIN [Suspect]
     Active Substance: CARBETOCIN
     Dosage: 100 MICROGRAM
     Route: 042
     Dates: start: 20250909, end: 20250909
  31. CARBETOCIN [Suspect]
     Active Substance: CARBETOCIN
     Dosage: 100 MICROGRAM
     Route: 042
     Dates: start: 20250909, end: 20250909
  32. CARBETOCIN [Suspect]
     Active Substance: CARBETOCIN
     Dosage: 100 MICROGRAM
     Dates: start: 20250909, end: 20250909
  33. MORPHINE HYDROCHLORIDE [Suspect]
     Active Substance: MORPHINE HYDROCHLORIDE
     Indication: Pain
     Dosage: 2 MILLIGRAM
     Dates: start: 20250909, end: 20250909
  34. MORPHINE HYDROCHLORIDE [Suspect]
     Active Substance: MORPHINE HYDROCHLORIDE
     Dosage: 2 MILLIGRAM
     Route: 008
     Dates: start: 20250909, end: 20250909
  35. MORPHINE HYDROCHLORIDE [Suspect]
     Active Substance: MORPHINE HYDROCHLORIDE
     Dosage: 2 MILLIGRAM
     Route: 008
     Dates: start: 20250909, end: 20250909
  36. MORPHINE HYDROCHLORIDE [Suspect]
     Active Substance: MORPHINE HYDROCHLORIDE
     Dosage: 2 MILLIGRAM
     Dates: start: 20250909, end: 20250909

REACTIONS (2)
  - Angioedema [Recovered/Resolved]
  - Anaphylactic reaction [Recovered/Resolved]

NARRATIVE: CASE EVENT DATE: 20250909
